FAERS Safety Report 7386216-3 (Version None)
Quarter: 2011Q1

REPORT INFORMATION
  Report Type: 
  Country: None (occurrence: None)
  Receive Date: 20110329
  Receipt Date: 20110329
  Transmission Date: 20110831
  Serious: Yes (Hospitalization)
  Sender: FDA-Public Use
  Company Number: None

PATIENT
  Sex: Female
  Weight: 63.5036 kg

DRUGS (1)
  1. FOSAMAX [Suspect]
     Indication: OSTEOPOROSIS
     Dosage: 70 MG ONCE A WEEK PO
     Route: 048
     Dates: start: 20060207, end: 20100608

REACTIONS (2)
  - PATHOLOGICAL FRACTURE [None]
  - FEMUR FRACTURE [None]
